FAERS Safety Report 11560057 (Version 1)
Quarter: 2015Q3

REPORT INFORMATION
  Report Type: Spontaneous
  Country: US (occurrence: US)
  Receive Date: 20150916
  Receipt Date: 20150916
  Transmission Date: 20151125
  Serious: No
  Sender: FDA-Public Use
  Company Number: US-ELI_LILLY_AND_COMPANY-US200809002432

PATIENT
  Age: 80 Year
  Sex: Female
  Weight: 51.25 kg

DRUGS (5)
  1. LEXAPRO [Concomitant]
     Active Substance: ESCITALOPRAM OXALATE
     Dosage: 10 MG, DAILY (1/D)
     Route: 048
  2. RYTHMOL [Concomitant]
     Active Substance: PROPAFENONE HYDROCHLORIDE
     Indication: HEART RATE IRREGULAR
     Dosage: 225 MG, 2/D
     Route: 048
  3. FORTEO [Suspect]
     Active Substance: TERIPARATIDE
     Indication: OSTEOPOROSIS
     Dosage: UNK, UNK
     Dates: end: 200808
  4. LUNESTA [Concomitant]
     Active Substance: ESZOPICLONE
     Dosage: 3 MG, EACH EVENING
     Route: 048
  5. NORCO [Concomitant]
     Active Substance: ACETAMINOPHEN\HYDROCODONE BITARTRATE
     Dosage: 1 D/F, 5 TIMES A DAY
     Route: 048

REACTIONS (14)
  - Dizziness [Recovered/Resolved]
  - Anxiety [Unknown]
  - Mobility decreased [Recovered/Resolved]
  - Bradycardia [Unknown]
  - Malaise [Recovered/Resolved]
  - Sensory disturbance [Recovered/Resolved]
  - Electrocardiogram abnormal [Unknown]
  - Adverse drug reaction [Recovered/Resolved]
  - Cardiac disorder [Recovered/Resolved]
  - Electrocardiogram T wave abnormal [Recovered/Resolved]
  - Bundle branch block left [Unknown]
  - Chest pain [Unknown]
  - Cognitive disorder [Recovered/Resolved]
  - Eye irritation [Recovered/Resolved]

NARRATIVE: CASE EVENT DATE: 2008
